FAERS Safety Report 23853472 (Version 1)
Quarter: 2024Q2

REPORT INFORMATION
  Report Type: Spontaneous
  Country: CN (occurrence: CN)
  Receive Date: 20240514
  Receipt Date: 20240514
  Transmission Date: 20240715
  Serious: Yes (Life-Threatening, Other)
  Sender: FDA-Public Use
  Company Number: CN-BEH-2024172169

PATIENT
  Age: 37 Year
  Sex: Male
  Weight: 88.5 kg

DRUGS (6)
  1. ALBURX [Suspect]
     Active Substance: ALBUMIN HUMAN
     Indication: Hypoproteinaemia
     Dosage: 10 G, OD
     Route: 041
     Dates: start: 20240419, end: 20240419
  2. ALBURX [Suspect]
     Active Substance: ALBUMIN HUMAN
     Dosage: UNK
     Route: 041
     Dates: start: 20240412
  3. ENTECAVIR [Concomitant]
     Active Substance: ENTECAVIR
     Indication: Chronic hepatitis B
  4. ENTECAVIR [Concomitant]
     Active Substance: ENTECAVIR
     Indication: Chronic hepatitis B
  5. HEPATOCYTE GROWTH FACTOR [Concomitant]
  6. FRESH FROZEN PLASMA [Concomitant]
     Active Substance: HUMAN PLASMA
     Dosage: UNK, PRN

REACTIONS (12)
  - Dyspnoea [Recovering/Resolving]
  - Chills [Recovering/Resolving]
  - Hypersensitivity [Recovering/Resolving]
  - Pyrexia [Recovering/Resolving]
  - Temperature intolerance [Recovering/Resolving]
  - Cyanosis [Recovering/Resolving]
  - Peripheral coldness [Recovering/Resolving]
  - Hyperhidrosis [Recovering/Resolving]
  - Hypertension [Recovering/Resolving]
  - Tachycardia [Recovering/Resolving]
  - Oxygen saturation decreased [Recovering/Resolving]
  - Rales [Recovering/Resolving]

NARRATIVE: CASE EVENT DATE: 20240419
